FAERS Safety Report 16357639 (Version 1)
Quarter: 2019Q2

REPORT INFORMATION
  Report Type: Spontaneous
  Country: CA (occurrence: CA)
  Receive Date: 20190527
  Receipt Date: 20190527
  Transmission Date: 20190711
  Serious: Yes (Other)
  Sender: FDA-Public Use
  Company Number: CA-PFIZER INC-2019206226

PATIENT
  Sex: Female

DRUGS (1)
  1. CARBOCAINE [Suspect]
     Active Substance: MEPIVACAINE HYDROCHLORIDE
     Dosage: UNK (TEN MILLILITERS OF 1 % CARBOCAINE WAS ADMINISTERED AS AN EPIDURAL )
     Route: 064

REACTIONS (2)
  - Supraventricular extrasystoles [Unknown]
  - Maternal exposure during pregnancy [Unknown]
